FAERS Safety Report 5387019-1 (Version None)
Quarter: 2007Q3

REPORT INFORMATION
  Report Type: 
  Country: None (occurrence: None)
  Receive Date: 20070713
  Receipt Date: 20070703
  Transmission Date: 20080115
  Serious: Yes (Other)
  Sender: FDA-Public Use
  Company Number: US-PFIZER INC-2007056537

PATIENT
  Sex: Male
  Weight: 90 kg

DRUGS (5)
  1. CHANTIX [Suspect]
     Indication: SMOKING CESSATION THERAPY
  2. METHADONE HCL [Concomitant]
     Indication: BACK DISORDER
  3. ALL OTHER THERAPEUTIC PRODUCTS [Concomitant]
     Indication: HYPERTENSION
  4. CYMBALTA [Concomitant]
  5. XANAX [Concomitant]

REACTIONS (2)
  - PARAESTHESIA [None]
  - SKIN REACTION [None]
